FAERS Safety Report 4594863-7 (Version None)
Quarter: 2005Q1

REPORT INFORMATION
  Report Type: 
  Country: None (occurrence: None)
  Receive Date: 20050301
  Receipt Date: 20040929
  Transmission Date: 20050727
  Serious: Yes (Death, Life-Threatening, Other)
  Sender: FDA-Public Use
  Company Number: US-ABBOTT-04P-163-0276014-00

PATIENT
  Age: 48 Year
  Sex: Female

DRUGS (4)
  1. DILAUDID [Suspect]
     Indication: POST PROCEDURAL PAIN
     Dosage: 55 CC BAG; CONCENTRATION 1CC FLUID VIA IV PUMP
     Route: 042
     Dates: end: 20040826
  2. KETOROLAC TROMETHAMINE [Concomitant]
     Indication: POST PROCEDURAL PAIN
     Route: 065
     Dates: start: 20040824, end: 20040825
  3. ONDANSETRON HYDROCHLORIDE [Concomitant]
     Indication: DRUG USE FOR UNKNOWN INDICATION
     Route: 065
     Dates: start: 20040825, end: 20040825
  4. DIPHENHYDRAMINE HCL [Concomitant]
     Indication: DRUG USE FOR UNKNOWN INDICATION
     Route: 048
     Dates: start: 20040825, end: 20040825

REACTIONS (5)
  - ANOXIA [None]
  - BRAIN DEATH [None]
  - CYANOSIS [None]
  - LOSS OF CONSCIOUSNESS [None]
  - VITAL FUNCTIONS ABNORMAL [None]
